FAERS Safety Report 8581193-1 (Version None)
Quarter: 2012Q3

REPORT INFORMATION
  Report Type: 
  Country: None (occurrence: None)
  Receive Date: 20120809
  Receipt Date: 20120730
  Transmission Date: 20120928
  Serious: Yes (Hospitalization)
  Sender: FDA-Public Use
  Company Number: US-BAYER-2012-067463

PATIENT
  Age: 46 Year
  Sex: Female
  Weight: 93.4 kg

DRUGS (15)
  1. YAZ [Suspect]
     Dosage: UNK
     Dates: start: 20040101, end: 20100901
  2. NEXIUM [Concomitant]
     Dosage: 40 MG DAILY
     Dates: start: 20100805
  3. SENOKOT-S [DOCUSATE SODIUM,SENNA ALEXANDRINA] [Concomitant]
     Dosage: 2 TABLETS DAILY
     Dates: start: 20100805
  4. DECADRON [Concomitant]
     Dosage: 2 MG, UNK
  5. MACROBID [Concomitant]
     Dosage: UNK
     Dates: start: 20101001, end: 20101010
  6. YASMIN [Suspect]
     Indication: PRODUCT USED FOR UNKNOWN INDICATION
     Dosage: UNK
     Dates: start: 20040101, end: 20100901
  7. YASMIN [Suspect]
     Dosage: UNK
  8. BISACODYL [Concomitant]
     Dosage: UNK
     Dates: start: 20100805
  9. KEPPRA [Concomitant]
     Dosage: 500 MG, BID
     Route: 048
     Dates: start: 20100805
  10. DECADRON [Concomitant]
     Dosage: 1 MG, UNK
  11. DECADRON [Concomitant]
     Dosage: 4 MG, UNK
  12. DECADRON [Concomitant]
     Dosage: 6 MILLIGRAMS, EVERY 6 HOURS
     Route: 048
     Dates: start: 20100809
  13. DECADRON [Concomitant]
     Dosage: 0.5 MG, UNK
  14. REGULAR INSULIN [Concomitant]
     Dosage: SLIDING SCALE COVERAGE
     Dates: start: 20100809
  15. DROSPIRENONE AND ETHINYL ESTRADIOL [Suspect]
     Indication: PRODUCT USED FOR UNKNOWN INDICATION
     Dosage: UNK
     Dates: start: 20040101, end: 20100901

REACTIONS (5)
  - DEEP VEIN THROMBOSIS [None]
  - CEREBRAL HAEMORRHAGE [None]
  - CEREBROVASCULAR ACCIDENT [None]
  - BRAIN NEOPLASM [None]
  - PULMONARY EMBOLISM [None]
